FAERS Safety Report 10759096 (Version 2)
Quarter: 2015Q1

REPORT INFORMATION
  Report Type: Spontaneous
  Country: US (occurrence: US)
  Receive Date: 20150203
  Receipt Date: 20150211
  Transmission Date: 20150721
  Serious: Yes (Other)
  Sender: FDA-Public Use
  Company Number: US-ABBVIE-15P-163-1339506-00

PATIENT
  Sex: Male

DRUGS (3)
  1. TESTIM [Suspect]
     Active Substance: TESTOSTERONE
     Indication: BLOOD TESTOSTERONE DECREASED
     Route: 065
     Dates: start: 20120307
  2. ANDROGEL [Suspect]
     Active Substance: TESTOSTERONE
     Indication: BLOOD TESTOSTERONE DECREASED
     Route: 061
     Dates: start: 201211, end: 20130128
  3. AXIRON [Suspect]
     Active Substance: TESTOSTERONE
     Indication: BLOOD TESTOSTERONE DECREASED
     Route: 065
     Dates: start: 20120719

REACTIONS (9)
  - Nervous system disorder [Unknown]
  - Cerebrovascular accident [Unknown]
  - Emotional disorder [Unknown]
  - Injury [Unknown]
  - Emotional distress [Unknown]
  - Impaired work ability [Unknown]
  - Economic problem [Unknown]
  - Physical disability [Unknown]
  - Pain [Unknown]

NARRATIVE: CASE EVENT DATE: 20130128
